FAERS Safety Report 4575621-6 (Version None)
Quarter: 2005Q1

REPORT INFORMATION
  Report Type: 
  Country: None (occurrence: None)
  Receive Date: 20050209
  Receipt Date: 20050127
  Transmission Date: 20050727
  Serious: Yes (Other)
  Sender: FDA-Public Use
  Company Number: GB-GLAXOSMITHKLINE-B0366062A

PATIENT
  Sex: Female

DRUGS (2)
  1. FLIXOTIDE [Suspect]
     Dosage: 1MG UNKNOWN
     Route: 055
     Dates: start: 19980101
  2. HYDROCORTISONE [Concomitant]

REACTIONS (4)
  - ADRENAL INSUFFICIENCY [None]
  - INFECTION [None]
  - LETHARGY [None]
  - SECONDARY ADRENOCORTICAL INSUFFICIENCY [None]
